FAERS Safety Report 13085559 (Version 1)
Quarter: 2017Q1

REPORT INFORMATION
  Report Type: Spontaneous
  Country: SE (occurrence: SE)
  Receive Date: 20170104
  Receipt Date: 20170104
  Transmission Date: 20170428
  Serious: Yes (Hospitalization, Other)
  Sender: FDA-Public Use
  Company Number: SE-PFIZER INC-2016605201

PATIENT
  Age: 49 Year
  Sex: Female

DRUGS (2)
  1. LYRICA [Suspect]
     Active Substance: PREGABALIN
     Indication: ANXIETY
     Dosage: 75 MG, 2X/DAY
     Route: 048
     Dates: start: 20160526, end: 20161119
  2. LYRICA [Suspect]
     Active Substance: PREGABALIN
     Indication: NEURALGIA

REACTIONS (4)
  - Fatigue [Unknown]
  - Headache [Unknown]
  - Syncope [Recovered/Resolved]
  - Respiratory arrest [Unknown]

NARRATIVE: CASE EVENT DATE: 20160927
